FAERS Safety Report 5851845-2 (Version None)
Quarter: 2008Q3

REPORT INFORMATION
  Report Type: 
  Country: None (occurrence: None)
  Receive Date: 20080820
  Receipt Date: 20080809
  Transmission Date: 20090109
  Serious: Yes (Other)
  Sender: FDA-Public Use
  Company Number: US-BAXTER-2008BH008493

PATIENT
  Age: 17 Year
  Sex: Male

DRUGS (29)
  1. ADVATE [Suspect]
     Indication: DRUG USE FOR UNKNOWN INDICATION
     Dosage: DOSE UNIT:UNITS PER KILOGRAM
     Dates: start: 20080806, end: 20080806
  2. ADVATE [Suspect]
     Dosage: DOSE UNIT:UNITS PER KILOGRAM
     Dates: start: 20080806, end: 20080806
  3. ADVATE [Suspect]
     Dosage: DOSE UNIT:UNITS PER KILOGRAM
     Dates: start: 20080806, end: 20080806
  4. ADVATE [Suspect]
     Dosage: DOSE UNIT:UNITS PER KILOGRAM
     Dates: start: 20080806, end: 20080806
  5. ADVATE [Suspect]
     Dosage: DOSE UNIT:UNITS PER KILOGRAM
     Dates: start: 20080807, end: 20080807
  6. ADVATE [Suspect]
     Dosage: DOSE UNIT:UNITS PER KILOGRAM
     Dates: start: 20080807, end: 20080807
  7. ADVATE [Suspect]
     Dosage: DOSE UNIT:UNITS PER KILOGRAM
     Dates: start: 20080807, end: 20080807
  8. ADVATE [Suspect]
     Dosage: DOSE UNIT:UNITS PER KILOGRAM
     Dates: start: 20080807, end: 20080807
  9. ADVATE [Suspect]
     Dosage: DOSE UNIT:UNITS PER KILOGRAM
     Dates: start: 20080807, end: 20080807
  10. ADVATE [Suspect]
     Dosage: DOSE UNIT:UNITS PER KILOGRAM
     Dates: start: 20080807, end: 20080807
  11. ADVATE [Suspect]
     Dosage: DOSE UNIT:UNITS PER KILOGRAM
     Dates: start: 20080807, end: 20080807
  12. ADVATE [Suspect]
     Dosage: DOSE UNIT:UNITS PER KILOGRAM
     Dates: start: 20080807, end: 20080807
  13. ADVATE [Suspect]
     Dosage: DOSE UNIT:UNITS PER KILOGRAM
     Dates: start: 20080808, end: 20080808
  14. ADVATE [Suspect]
     Dosage: DOSE UNIT:UNITS PER KILOGRAM
     Dates: start: 20080808, end: 20080808
  15. ADVATE [Suspect]
     Dosage: DOSE UNIT:UNITS PER KILOGRAM
     Dates: start: 20080808, end: 20080808
  16. ADVATE [Suspect]
     Dosage: DOSE UNIT:UNITS PER KILOGRAM
     Dates: start: 20080808, end: 20080808
  17. ADVATE [Suspect]
     Dosage: DOSE UNIT:UNITS PER KILOGRAM
     Dates: start: 20080808, end: 20080808
  18. ADVATE [Suspect]
     Dosage: DOSE UNIT:UNITS PER KILOGRAM
     Dates: start: 20080808, end: 20080808
  19. ADVATE [Suspect]
     Dosage: DOSE UNIT:UNITS PER KILOGRAM
     Dates: start: 20080814, end: 20080814
  20. ADVATE [Suspect]
     Dosage: DOSE UNIT:UNITS PER KILOGRAM
     Dates: start: 20080814, end: 20080814
  21. ADVATE [Suspect]
     Dosage: DOSE UNIT:UNITS PER KILOGRAM
     Dates: start: 20080807, end: 20080807
  22. ADVATE [Suspect]
     Dosage: DOSE UNIT:UNITS PER KILOGRAM
     Dates: start: 20080807, end: 20080807
  23. ADVATE [Suspect]
     Dosage: DOSE UNIT:UNITS PER KILOGRAM
     Dates: start: 20080807, end: 20080807
  24. ADVATE [Suspect]
     Dosage: DOSE UNIT:UNITS PER KILOGRAM
     Dates: start: 20080808, end: 20080808
  25. ADVATE [Suspect]
     Dosage: DOSE UNIT:UNITS PER KILOGRAM
     Dates: start: 20080808, end: 20080808
  26. ADVATE [Suspect]
     Dosage: DOSE UNIT:UNITS PER KILOGRAM
     Dates: start: 20080808, end: 20080808
  27. ADVATE [Suspect]
     Dosage: DOSE UNIT:UNITS PER KILOGRAM
     Dates: start: 20080808, end: 20080808
  28. ADVATE [Suspect]
     Dosage: DOSE UNIT:UNITS PER KILOGRAM
     Dates: start: 20080814, end: 20080814
  29. ADVATE [Suspect]
     Dosage: DOSE UNIT:UNITS PER KILOGRAM
     Dates: start: 20080814, end: 20080814

REACTIONS (3)
  - DRUG DISPENSING ERROR [None]
  - DRUG LEVEL BELOW THERAPEUTIC [None]
  - MEDICATION ERROR [None]
